FAERS Safety Report 4794360-X (Version None)
Quarter: 2005Q4

REPORT INFORMATION
  Report Type: 
  Country: None (occurrence: None)
  Receive Date: 20051007
  Receipt Date: 20051007
  Transmission Date: 20060501
  Serious: Yes (Life-Threatening, Hospitalization)
  Sender: FDA-Public Use
  Company Number: None

PATIENT
  Age: 79 Year
  Sex: Female
  Weight: 90.7194 kg

DRUGS (2)
  1. DEPODUR [Suspect]
     Indication: KNEE ARTHROPLASTY
     Dates: start: 20050906, end: 20050906
  2. DEPODUR [Suspect]
     Indication: PAIN PROPHYLAXIS
     Dates: start: 20050906, end: 20050906

REACTIONS (4)
  - CYANOSIS [None]
  - INJECTION SITE REACTION [None]
  - OXYGEN SATURATION DECREASED [None]
  - RESPIRATORY RATE DECREASED [None]
